FAERS Safety Report 13266062 (Version 1)
Quarter: 2017Q1

REPORT INFORMATION
  Report Type: Spontaneous
  Country: US (occurrence: US)
  Receive Date: 20170223
  Receipt Date: 20170223
  Transmission Date: 20170428
  Serious: No
  Sender: FDA-Public Use
  Company Number: US-BEH-2017078316

PATIENT
  Sex: Male
  Weight: 71.66 kg

DRUGS (1)
  1. HIZENTRA [Suspect]
     Active Substance: HUMAN IMMUNOGLOBULIN G
     Indication: IMMUNODEFICIENCY COMMON VARIABLE
     Dosage: 10G/50ML, QW
     Route: 058
     Dates: start: 20161115

REACTIONS (2)
  - Injection site dryness [Unknown]
  - Bronchitis [Unknown]
